FAERS Safety Report 11262241 (Version 1)
Quarter: 2015Q3

REPORT INFORMATION
  Report Type: Spontaneous
  Country: US (occurrence: US)
  Receive Date: 20150710
  Receipt Date: 20150710
  Transmission Date: 20151125
  Serious: No
  Sender: FDA-Public Use
  Company Number: US-PURDUE-USA-2015-0123022

PATIENT
  Sex: Female

DRUGS (1)
  1. BUTRANS [Suspect]
     Active Substance: BUPRENORPHINE
     Indication: PAIN
     Dosage: 10 MCG/HR, WEEKLY
     Route: 062
     Dates: start: 201504

REACTIONS (6)
  - Tremor [Unknown]
  - Pruritus [Unknown]
  - Dizziness [Unknown]
  - Tunnel vision [Unknown]
  - Application site rash [Recovering/Resolving]
  - Hyperhidrosis [Unknown]
